FAERS Safety Report 9905841 (Version 1)
Quarter: 2014Q1

REPORT INFORMATION
  Report Type: Spontaneous
  Country: US (occurrence: US)
  Receive Date: 20140218
  Receipt Date: 20140218
  Transmission Date: 20141002
  Serious: Yes (Life-Threatening, Other)
  Sender: FDA-Public Use
  Company Number: US-ABBVIE-14P-163-1202644-00

PATIENT
  Age: 42 Year
  Sex: Male

DRUGS (1)
  1. ANDROGEL [Suspect]
     Indication: PRODUCT USED FOR UNKNOWN INDICATION

REACTIONS (17)
  - Spinal cord infarction [Unknown]
  - Physical disability [Unknown]
  - Emotional disorder [Unknown]
  - Paralysis [Unknown]
  - Faecal incontinence [Unknown]
  - Urinary incontinence [Unknown]
  - Injury [Unknown]
  - Physical disability [Unknown]
  - Pain [Unknown]
  - Anxiety [Unknown]
  - Injury [Unknown]
  - Wheelchair user [Unknown]
  - Economic problem [Unknown]
  - Loss of employment [Unknown]
  - Economic problem [Unknown]
  - Impaired work ability [Unknown]
  - Economic problem [Unknown]
